FAERS Safety Report 7199940-2 (Version None)
Quarter: 2010Q4

REPORT INFORMATION
  Report Type: 
  Country: None (occurrence: None)
  Receive Date: 20101228
  Receipt Date: 20101221
  Transmission Date: 20110411
  Serious: No
  Sender: FDA-Public Use
  Company Number: US-PFIZER INC-2010177091

PATIENT
  Sex: Female
  Weight: 54.4 kg

DRUGS (6)
  1. LIPITOR [Suspect]
     Indication: BLOOD CHOLESTEROL INCREASED
     Dosage: 20 MG, DAILY
     Route: 048
  2. POTASSIUM [Concomitant]
     Dosage: UNK
  3. WARFARIN [Concomitant]
     Dosage: UNK
  4. COREG [Concomitant]
     Dosage: UNK
  5. DYAZIDE [Concomitant]
     Dosage: UNK
  6. ACINIL [Concomitant]
     Dosage: UNK, ONCE A WEEK

REACTIONS (1)
  - DIARRHOEA [None]
